FAERS Safety Report 23283715 (Version 3)
Quarter: 2024Q1

REPORT INFORMATION
  Report Type: Report from Study
  Country: CN (occurrence: CN)
  Receive Date: 20231211
  Receipt Date: 20240207
  Transmission Date: 20240410
  Serious: No
  Sender: FDA-Public Use
  Company Number: CN-PFIZER INC-PV202300197697

PATIENT
  Age: 28 Year
  Sex: Female
  Weight: 90 kg

DRUGS (27)
  1. NIRMATRELVIR\RITONAVIR [Suspect]
     Active Substance: NIRMATRELVIR\RITONAVIR
     Indication: COVID-19
     Dosage: [NIRMATRELVIR 300MG]/[RITONAVIR 100MG], EVERY 12 HOURS (Q12H)
     Route: 048
     Dates: start: 20220822, end: 20220901
  2. LEUCOGEN [Concomitant]
     Active Substance: LEUCOGEN
     Indication: Platelet transfusion
     Dosage: UNK
     Route: 048
     Dates: start: 20220821, end: 20220904
  3. VITAMIN C [Concomitant]
     Active Substance: ASCORBIC ACID
     Indication: Inflammation
     Dosage: UNK
     Route: 042
     Dates: start: 20220821, end: 20220904
  4. GLUTATHIONE [Concomitant]
     Active Substance: GLUTATHIONE
     Indication: Prophylaxis
     Dosage: UNK
     Route: 042
     Dates: start: 20220821, end: 20230823
  5. AMMONIUM GLYCYRRHIZATE\CYSTEINE HYDROCHLORIDE\GLYCINE [Concomitant]
     Active Substance: AMMONIUM GLYCYRRHIZATE\CYSTEINE HYDROCHLORIDE\GLYCINE
     Indication: Prophylaxis
     Dosage: UNK
     Route: 042
     Dates: start: 20220821, end: 20220826
  6. POTASSIUM CHLORIDE [Concomitant]
     Active Substance: POTASSIUM CHLORIDE
     Indication: Mineral supplementation
     Dosage: SUSTAINED-RELEASE
     Route: 048
     Dates: start: 20220821, end: 20220904
  7. OXYGEN [Concomitant]
     Active Substance: OXYGEN
     Indication: COVID-19
     Dosage: SUPPLEMENTATL THERAPY
     Route: 055
     Dates: start: 20220821, end: 20220821
  8. CARBOHYDRATES\FATTY ACIDS\MINERALS\PROTEIN\VITAMINS [Concomitant]
     Active Substance: CARBOHYDRATES\FATTY ACIDS\MINERALS\PROTEIN\VITAMINS
     Indication: Nutritional supplementation
     Dosage: UNK
     Route: 048
     Dates: start: 20220822, end: 20220904
  9. AMINOPHYLLINE\CHLORPHENIRAMINE MALEATE\METHOXYPHENAMINE HYDROCHLORIDE\ [Concomitant]
     Active Substance: AMINOPHYLLINE\CHLORPHENIRAMINE MALEATE\METHOXYPHENAMINE HYDROCHLORIDE\NOSCAPINE
     Indication: Cough
     Dosage: UNK
     Route: 048
     Dates: start: 20220822, end: 20220904
  10. MONTELUKAST SODIUM [Concomitant]
     Active Substance: MONTELUKAST SODIUM
     Indication: Cough
     Dosage: UNK
     Route: 048
     Dates: start: 20220822, end: 20220904
  11. PREDNISOLONE [Concomitant]
     Active Substance: PREDNISOLONE
     Indication: Inflammation
     Dosage: UNK
     Route: 048
     Dates: start: 20220822, end: 20220904
  12. METHOTREXATE [Concomitant]
     Active Substance: METHOTREXATE
     Indication: Inflammation
     Dosage: UNK
     Route: 048
     Dates: start: 20220822, end: 20220904
  13. FOLIC ACID [Concomitant]
     Active Substance: FOLIC ACID
     Indication: Nutritional supplementation
     Dosage: UNK
     Route: 048
     Dates: start: 20220822, end: 20220904
  14. RECOMBINANT HUMAN INTERFERON ALFA 2B [Concomitant]
     Indication: Antiviral prophylaxis
     Dosage: SPRAY
     Dates: start: 20220822, end: 20220904
  15. ESCITALOPRAM OXALATE [Concomitant]
     Active Substance: ESCITALOPRAM OXALATE
     Dosage: UNK
     Route: 048
     Dates: start: 20220822, end: 20220822
  16. TRAZODONE HYDROCHLORIDE [Concomitant]
     Active Substance: TRAZODONE HYDROCHLORIDE
     Indication: Antidepressant therapy
     Dosage: UNK
     Route: 048
     Dates: start: 20220822, end: 20220904
  17. MELATONIN [Concomitant]
     Active Substance: MELATONIN
     Indication: Sleep disorder
     Dosage: UNK
     Route: 048
     Dates: start: 20220822, end: 20220904
  18. VENLAFAXINE HYDROCHLORIDE [Concomitant]
     Active Substance: VENLAFAXINE HYDROCHLORIDE
     Indication: Antidepressant therapy
     Dosage: SUSTAINED-RELEASE
     Route: 048
     Dates: start: 20220822, end: 20220904
  19. THYMALFASIN [Concomitant]
     Active Substance: THYMALFASIN
     Indication: Antidepressant therapy
     Dosage: UNK
     Route: 048
     Dates: start: 20220822, end: 20220904
  20. ITOPRIDE HYDROCHLORIDE [Concomitant]
     Active Substance: ITOPRIDE HYDROCHLORIDE
     Indication: Gastrointestinal motility disorder
     Dosage: DISPERSIBLE TABLET
     Route: 048
     Dates: start: 20220823, end: 20220904
  21. IPRATROPIUM BROMIDE [Concomitant]
     Active Substance: IPRATROPIUM BROMIDE\IPRATROPIUM BROMIDE ANHYDROUS
     Indication: Cough
     Dosage: SOLUTION FOR INHALATION, SPRAY
     Dates: start: 20220823, end: 20220904
  22. BUDESONIDE [Concomitant]
     Active Substance: BUDESONIDE
     Indication: Cough
     Dosage: SUSPENSION FOR INHALATION, SPRAY
     Dates: start: 20220823, end: 20220904
  23. CODEINE PHOSPHATE [Concomitant]
     Active Substance: CODEINE PHOSPHATE
     Indication: Cough
     Dosage: UNK
     Route: 048
     Dates: start: 20220828, end: 20220828
  24. OMEPRAZOLE SODIUM [Concomitant]
     Active Substance: OMEPRAZOLE SODIUM
     Indication: Antacid therapy
     Dosage: UNK
     Route: 042
     Dates: start: 20220823
  25. MOXIFLOXACIN HYDROCHLORIDE [Concomitant]
     Active Substance: MOXIFLOXACIN HYDROCHLORIDE\MOXIFLOXACIN HYDROCHLORIDE MONOHYDRATE
     Indication: Anti-infective therapy
     Dosage: UNK
     Route: 042
     Dates: start: 20220830
  26. LACTULOSE [Concomitant]
     Active Substance: LACTULOSE
     Indication: Laxative supportive care
     Dosage: UNK
     Route: 048
     Dates: start: 20220823
  27. ENEMA [PHOSPHORIC ACID SODIUM;SODIUM PHOSPHATE DIBASIC] [Concomitant]
     Indication: Laxative supportive care
     Dosage: TOP
     Dates: start: 20220823

REACTIONS (1)
  - Overdose [Unknown]
